FAERS Safety Report 4824402-4 (Version None)
Quarter: 2005Q4

REPORT INFORMATION
  Report Type: 
  Country: None (occurrence: None)
  Receive Date: 20051108
  Receipt Date: 20051020
  Transmission Date: 20060501
  Serious: Yes (Death)
  Sender: FDA-Public Use
  Company Number: 05H-163-0303422-00

PATIENT
  Sex: Male

DRUGS (1)
  1. MORPHINE SULFATE [Suspect]
     Dosage: ^OVER 1000 MG^

REACTIONS (3)
  - DEVICE FAILURE [None]
  - MEDICATION ERROR [None]
  - OVERDOSE [None]
